FAERS Safety Report 9887925 (Version 1)
Quarter: 2014Q1

REPORT INFORMATION
  Report Type: Spontaneous
  Country: JP (occurrence: JP)
  Receive Date: 20140211
  Receipt Date: 20140211
  Transmission Date: 20141002
  Serious: Yes (Other)
  Sender: FDA-Public Use
  Company Number: JP-ASTELLAS-2014US001224

PATIENT
  Age: 60 Year
  Sex: Female

DRUGS (2)
  1. AMBISOME [Suspect]
     Indication: LYMPHOMA
     Dosage: UNK
     Route: 042
  2. VORICONAZOLE [Suspect]
     Indication: LYMPHOMA
     Dosage: UNK
     Route: 065

REACTIONS (1)
  - Pancytopenia [Recovered/Resolved]
